FAERS Safety Report 4307664-1 (Version None)
Quarter: 2004Q1

REPORT INFORMATION
  Report Type: 
  Country: None (occurrence: None)
  Receive Date: 20040225
  Receipt Date: 20030905
  Transmission Date: 20041129
  Serious: Yes (Life-Threatening, Hospitalization, Other)
  Sender: FDA-Public Use
  Company Number: WAES 0309USA00797

PATIENT
  Age: 70 Year
  Sex: Male
  Weight: 100.6985 kg

DRUGS (6)
  1. ZOCOR [Suspect]
     Indication: LIPIDS INCREASED
     Dosage: 20 MG/DAILY/PO
     Route: 048
  2. ALTACE [Concomitant]
  3. DETROL LA [Concomitant]
  4. GLUCOTROL XL [Concomitant]
  5. NORVASC [Concomitant]
  6. DOXAZOSIN MESYLATE [Concomitant]

REACTIONS (2)
  - RENAL IMPAIRMENT [None]
  - RHABDOMYOLYSIS [None]
